FAERS Safety Report 20084896 (Version 3)
Quarter: 2022Q2

REPORT INFORMATION
  Report Type: Report from Study
  Country: PE (occurrence: PE)
  Receive Date: 20211118
  Receipt Date: 20220530
  Transmission Date: 20220720
  Serious: Yes (Other)
  Sender: FDA-Public Use
  Company Number: PE-NOVARTISPH-NVSC2021PE162717

PATIENT
  Age: 49 Year
  Sex: Female
  Weight: 103 kg

DRUGS (3)
  1. KISQALI [Suspect]
     Active Substance: RIBOCICLIB
     Indication: Breast cancer metastatic
     Dosage: 600 MG, QD
     Route: 048
     Dates: start: 202001
  2. KISQALI [Suspect]
     Active Substance: RIBOCICLIB
     Dosage: 600 MG, QD
     Route: 048
     Dates: start: 20210426
  3. KISQALI [Suspect]
     Active Substance: RIBOCICLIB
     Dosage: 600 MG, QD
     Route: 048
     Dates: start: 20210614

REACTIONS (5)
  - Arrhythmia [Unknown]
  - Weight increased [Unknown]
  - Tumour marker increased [Unknown]
  - Decreased immune responsiveness [Unknown]
  - Off label use [Unknown]

NARRATIVE: CASE EVENT DATE: 20210714
